FAERS Safety Report 19924454 (Version 1)
Quarter: 2021Q4

REPORT INFORMATION
  Report Type: Spontaneous
  Country: US (occurrence: US)
  Receive Date: 20211005
  Receipt Date: 20211005
  Transmission Date: 20220303
  Serious: No
  Sender: FDA-Public Use
  Company Number: None

PATIENT
  Age: 82 Year
  Sex: Female

DRUGS (1)
  1. POTASSIUM CHLORIDE [Suspect]
     Active Substance: POTASSIUM CHLORIDE
     Route: 042

REACTIONS (5)
  - Cardiac arrest [None]
  - Multiple organ dysfunction syndrome [None]
  - Product selection error [None]
  - Product preparation error [None]
  - Accidental death [None]
